FAERS Safety Report 17303357 (Version 2)
Quarter: 2020Q1

REPORT INFORMATION
  Report Type: Report from Study
  Country: KR (occurrence: KR)
  Receive Date: 20200122
  Receipt Date: 20200127
  Transmission Date: 20200409
  Serious: Yes (Death, Hospitalization)
  Sender: FDA-Public Use
  Company Number: KR-EISAI MEDICAL RESEARCH-EC-2020-068662

PATIENT
  Age: 49 Year
  Sex: Male
  Weight: 68 kg

DRUGS (16)
  1. LACTICARE-HC [Concomitant]
     Dates: start: 20191127
  2. TRAMAROL [Concomitant]
     Dates: start: 20191127
  3. LODINE [Concomitant]
     Active Substance: ETODOLAC
     Dates: start: 20191121, end: 20191205
  4. LENVATINIB [Suspect]
     Active Substance: LENVATINIB
     Indication: GLIOBLASTOMA
     Route: 048
     Dates: start: 20191106, end: 20191120
  5. LENVATINIB [Suspect]
     Active Substance: LENVATINIB
     Route: 048
     Dates: start: 20191127, end: 20191210
  6. PEMBROLIZUMAB. [Suspect]
     Active Substance: PEMBROLIZUMAB
     Indication: GLIOBLASTOMA
     Route: 041
     Dates: start: 20191106, end: 20191106
  7. PEMBROLIZUMAB. [Suspect]
     Active Substance: PEMBROLIZUMAB
     Route: 041
     Dates: start: 20191218
  8. LACTULOSE. [Concomitant]
     Active Substance: LACTULOSE
     Dates: start: 20191106
  9. URSODIOL. [Concomitant]
     Active Substance: URSODIOL
     Dates: start: 20191121, end: 20191127
  10. ATACAND [Concomitant]
     Active Substance: CANDESARTAN CILEXETIL
     Dates: start: 20191121, end: 20191205
  11. MAGO [Concomitant]
     Dates: start: 20191030
  12. LEGALON [Concomitant]
     Active Substance: DIETARY SUPPLEMENT\HERBALS\MILK THISTLE
     Dates: start: 20191121, end: 20191127
  13. LENVATINIB [Suspect]
     Active Substance: LENVATINIB
     Route: 048
     Dates: start: 20191218
  14. CANDEAMLO [Concomitant]
     Dates: start: 20191206, end: 20191211
  15. PEMBROLIZUMAB. [Suspect]
     Active Substance: PEMBROLIZUMAB
     Route: 041
     Dates: start: 20191127, end: 20191127
  16. ALMAGEL [Concomitant]
     Dates: start: 20191127, end: 20191205

REACTIONS (1)
  - Disease progression [Fatal]

NARRATIVE: CASE EVENT DATE: 20191211
